FAERS Safety Report 14530060 (Version 2)
Quarter: 2018Q1

REPORT INFORMATION
  Report Type: Spontaneous
  Country: US (occurrence: US)
  Receive Date: 20180214
  Receipt Date: 20180214
  Transmission Date: 20180509
  Serious: Yes (Other)
  Sender: FDA-Public Use
  Company Number: US-BAYER-2018-029619

PATIENT

DRUGS (2)
  1. MIRENA [Suspect]
     Active Substance: LEVONORGESTREL
     Dosage: 20 MCG/24HR, CONT
     Route: 015
     Dates: start: 20121003
  2. MIRENA [Suspect]
     Active Substance: LEVONORGESTREL

REACTIONS (9)
  - Intracranial pressure increased [None]
  - Headache [None]
  - Back pain [None]
  - Visual impairment [None]
  - Neck pain [None]
  - Musculoskeletal pain [None]
  - Pain [None]
  - Tinnitus [None]
  - Abdominal pain lower [None]
